FAERS Safety Report 6498209-9 (Version None)
Quarter: 2009Q4

REPORT INFORMATION
  Report Type: 
  Country: None (occurrence: None)
  Receive Date: 20091215
  Receipt Date: 20091210
  Transmission Date: 20100525
  Serious: Yes (Other)
  Sender: FDA-Public Use
  Company Number: A0834579A

PATIENT
  Sex: Female

DRUGS (3)
  1. LAMICTAL [Suspect]
     Route: 048
     Dates: start: 20081201
  2. LAMOTRIGINE [Suspect]
     Route: 048
     Dates: start: 20071201, end: 20081201
  3. KLONOPIN [Concomitant]

REACTIONS (4)
  - CONVULSION [None]
  - DECREASED APPETITE [None]
  - DROOLING [None]
  - STARING [None]
